FAERS Safety Report 10382762 (Version 1)
Quarter: 2014Q3

REPORT INFORMATION
  Report Type: Spontaneous
  Country: US (occurrence: US)
  Receive Date: 20140813
  Receipt Date: 20140813
  Transmission Date: 20150326
  Serious: No
  Sender: FDA-Public Use
  Company Number: US-SANOFI-AVENTIS-2013SA093755

PATIENT
  Age: 21 Year
  Sex: Male
  Weight: 75 kg

DRUGS (3)
  1. FABRAZYME [Suspect]
     Active Substance: AGALSIDASE BETA
     Indication: PRODUCT USED FOR UNKNOWN INDICATION
     Dosage: FORM: INFUSION?FREQ: Q2
     Route: 065
     Dates: start: 20130915, end: 20130915
  2. FABRAZYME [Suspect]
     Active Substance: AGALSIDASE BETA
     Indication: PRODUCT USED FOR UNKNOWN INDICATION
     Dosage: FREQ: Q2?FORM: INFUSION
     Route: 065
     Dates: start: 20130320, end: 20130821
  3. RELPAX [Concomitant]
     Active Substance: ELETRIPTAN HYDROBROMIDE
     Dosage: STRENGTH: 40 MG
     Route: 048

REACTIONS (6)
  - Blood pressure increased [Unknown]
  - Lacrimation increased [Unknown]
  - Headache [Unknown]
  - Sensation of foreign body [Unknown]
  - Flushing [Unknown]
  - Chills [Unknown]

NARRATIVE: CASE EVENT DATE: 20130915
